FAERS Safety Report 11126671 (Version 2)
Quarter: 2015Q2

REPORT INFORMATION
  Report Type: Spontaneous
  Country: US (occurrence: US)
  Receive Date: 20150520
  Receipt Date: 20150611
  Transmission Date: 20150821
  Serious: No
  Sender: FDA-Public Use
  Company Number: US-GLAXOSMITHKLINE-US2015GSK068965

PATIENT
  Sex: Female

DRUGS (4)
  1. ZOLOFT [Suspect]
     Active Substance: SERTRALINE HYDROCHLORIDE
     Indication: TRICHOTILLOMANIA
  2. PAXIL [Suspect]
     Active Substance: PAROXETINE HYDROCHLORIDE
     Indication: TRICHOTILLOMANIA
  3. CELEXA [Suspect]
     Active Substance: CITALOPRAM HYDROBROMIDE
     Indication: TRICHOTILLOMANIA
  4. WELLBUTRIN [Suspect]
     Active Substance: BUPROPION HYDROCHLORIDE
     Indication: TRICHOTILLOMANIA

REACTIONS (10)
  - Mood altered [Unknown]
  - Acne [Unknown]
  - Condition aggravated [Unknown]
  - Product quality issue [Unknown]
  - Weight increased [Unknown]
  - Irritability [Unknown]
  - Feeling abnormal [Unknown]
  - Increased appetite [Unknown]
  - Drug ineffective [Unknown]
  - Apathy [Unknown]
